FAERS Safety Report 9013825 (Version 1)
Quarter: 2013Q1

REPORT INFORMATION
  Report Type: Spontaneous
  Country: US (occurrence: US)
  Receive Date: 20130115
  Receipt Date: 20130115
  Transmission Date: 20140127
  Serious: Yes (Hospitalization)
  Sender: FDA-Public Use
  Company Number: US-BAYER-2013-003908

PATIENT
  Age: 30 Year
  Sex: Female

DRUGS (7)
  1. YASMIN [Suspect]
  2. LEVOXYL [Concomitant]
  3. XANAX [Concomitant]
  4. AMBIEN [Concomitant]
  5. VIOXX [Concomitant]
  6. MOTRIN [Concomitant]
     Dosage: 600 MG, UNK
  7. DILAUDID [Concomitant]

REACTIONS (1)
  - Pulmonary embolism [None]
